FAERS Safety Report 5398828-7 (Version None)
Quarter: 2007Q3

REPORT INFORMATION
  Report Type: 
  Country: None (occurrence: None)
  Receive Date: 20070725
  Receipt Date: 20070725
  Transmission Date: 20080115
  Serious: Yes (Other)
  Sender: FDA-Public Use
  Company Number: None

PATIENT
  Age: 60 Year
  Sex: Female
  Weight: 90.7194 kg

DRUGS (2)
  1. AVANDIA [Suspect]
     Indication: DIABETES MELLITUS
     Dates: start: 20070101
  2. ACTOS [Suspect]
     Indication: DIABETES MELLITUS
     Dates: start: 20070101

REACTIONS (4)
  - GAIT DISTURBANCE [None]
  - OEDEMA PERIPHERAL [None]
  - PAIN IN EXTREMITY [None]
  - WEIGHT INCREASED [None]
